FAERS Safety Report 23972952 (Version 1)
Quarter: 2024Q2

REPORT INFORMATION
  Report Type: Spontaneous
  Country: US (occurrence: None)
  Receive Date: 20240613
  Receipt Date: 20240613
  Transmission Date: 20240715
  Serious: Yes (Hospitalization)
  Sender: FDA-Public Use
  Company Number: None

PATIENT
  Sex: Female

DRUGS (1)
  1. TACROLIMUS [Suspect]
     Active Substance: TACROLIMUS
     Indication: Lung transplant
     Dosage: OTHER QUANTITY : TAKE 6 CAPSULES;?FREQUENCY : EVERY 12 HOURS;?
     Route: 048
     Dates: start: 20200612

REACTIONS (1)
  - Dyspnoea [None]
